FAERS Safety Report 25475579 (Version 1)
Quarter: 2025Q2

REPORT INFORMATION
  Report Type: Spontaneous
  Country: TH (occurrence: TH)
  Receive Date: 20250624
  Receipt Date: 20250624
  Transmission Date: 20250716
  Serious: Yes (Death)
  Sender: MERCK SHARP & DOHME LLC
  Company Number: TH-009507513-2291833

PATIENT
  Age: 65 Year
  Sex: Male

DRUGS (2)
  1. KEYTRUDA [Suspect]
     Active Substance: PEMBROLIZUMAB
     Indication: Non-small cell lung cancer metastatic
     Route: 042
     Dates: start: 20250521, end: 20250521
  2. KEYTRUDA [Suspect]
     Active Substance: PEMBROLIZUMAB
     Indication: Non-small cell lung cancer metastatic
     Route: 042
     Dates: start: 20250428, end: 20250428

REACTIONS (3)
  - Death [Fatal]
  - Off label use [Unknown]
  - Inappropriate schedule of product administration [Unknown]

NARRATIVE: CASE EVENT DATE: 20250428
